FAERS Safety Report 5534313-7 (Version None)
Quarter: 2007Q4

REPORT INFORMATION
  Report Type: 
  Country: None (occurrence: None)
  Receive Date: 20071120
  Receipt Date: 20070119
  Transmission Date: 20080405
  Serious: Yes (Other)
  Sender: FDA-Public Use
  Company Number: HQWYE150122JAN07

PATIENT
  Sex: Male

DRUGS (2)
  1. ZOSYN [Suspect]
     Dosage: 3.375 G 1X PER 6 HR, INTRAVENOUS
     Route: 042
  2. METOCLOPRAMIDE [Suspect]

REACTIONS (1)
  - TORTICOLLIS [None]
